FAERS Safety Report 16487940 (Version 2)
Quarter: 2019Q3

REPORT INFORMATION
  Report Type: Spontaneous
  Country: JP (occurrence: JP)
  Receive Date: 20190627
  Receipt Date: 20190805
  Transmission Date: 20191004
  Serious: Yes (Other)
  Sender: FDA-Public Use
  Company Number: JP-GLAXOSMITHKLINE-JP2019JPN112188

PATIENT
  Age: 78 Year
  Sex: Male
  Weight: 55 kg

DRUGS (14)
  1. LOXOPROFEN SODIUM TABLETS [Concomitant]
     Dosage: UNK, AS NEEDED UP TO 3 TIMES DAILY WHEN PAIN DEVELOPES
  2. VALACICLOVIR HYDROCHLORIDE [Suspect]
     Active Substance: VALACYCLOVIR HYDROCHLORIDE
     Indication: HERPES ZOSTER
     Dosage: 1000 MG, TID AFTER BREAKFAST, LUNCH, AND DINNER
     Route: 048
     Dates: start: 20190529, end: 20190602
  3. TOFISOPAM [Concomitant]
     Active Substance: TOFISOPAM
     Dosage: 50 MG, TID AFTER MEALS
     Dates: end: 20190603
  4. IFENPRODIL TARTRATE [Concomitant]
     Active Substance: IFENPRODIL TARTRATE
     Dosage: 20 MG, TID AFTER MEALS
     Dates: end: 20190603
  5. MECOBALAMIN TABLETS [Concomitant]
     Active Substance: METHYLCOBALAMIN
     Dosage: 500 MG, TID AFTER MEALS
  6. MAGNESIUM OXIDE TABLET [Concomitant]
     Dosage: 330 MG, TID AFTER MEALS
  7. CELECOX TABLETS [Concomitant]
     Dosage: 100 MG, BID IN THE MORNING AND EVENING
  8. RIVOTRIL [Concomitant]
     Active Substance: CLONAZEPAM
     Dosage: 0.5 MG, QD AT BEDTIME
  9. ZOVIRAX [Suspect]
     Active Substance: ACYCLOVIR
     Dosage: UNK
     Route: 048
  10. CHINESE MEDICINE [Concomitant]
     Active Substance: UNSPECIFIED INGREDIENT
     Dosage: 2.5 G, BID IN THE MORNING AND EVENING
  11. TIZANIDINE. [Concomitant]
     Active Substance: TIZANIDINE
     Dosage: 1 MG, TID AFTER MEALS
  12. LYRICA [Concomitant]
     Active Substance: PREGABALIN
     Dosage: 75 MG, QD AFTER DINNER
  13. VOALLA OINTMENT [Concomitant]
     Dosage: UNK, BID
     Route: 061
  14. LOXONIN [Concomitant]
     Active Substance: LOXOPROFEN SODIUM
     Dosage: UNK, QD
     Route: 061

REACTIONS (14)
  - Chest X-ray abnormal [Unknown]
  - Sacral radiculopathy [Unknown]
  - Encephalitis toxic [Unknown]
  - Monoplegia [Unknown]
  - Dyslalia [Unknown]
  - Gait disturbance [Unknown]
  - Grip strength decreased [Unknown]
  - Cerebral infarction [Unknown]
  - Asthenia [Unknown]
  - Hypoaesthesia [Unknown]
  - Renal impairment [Recovered/Resolved]
  - Altered state of consciousness [Recovered/Resolved]
  - Pyelocaliectasis [Unknown]
  - Dysuria [Unknown]

NARRATIVE: CASE EVENT DATE: 20190602
